FAERS Safety Report 5625834-7 (Version None)
Quarter: 2008Q1

REPORT INFORMATION
  Report Type: 
  Country: None (occurrence: None)
  Receive Date: 20080214
  Receipt Date: 20080205
  Transmission Date: 20080703
  Serious: Yes (Other)
  Sender: FDA-Public Use
  Company Number: JP-NOVOPROD-272032

PATIENT
  Sex: Male

DRUGS (1)
  1. NOVORAPID CHU FLEXPEN [Suspect]
     Indication: INTENTIONAL OVERDOSE
     Dosage: 300 IU, SINGLE

REACTIONS (2)
  - BLOOD GLUCOSE DECREASED [None]
  - INTENTIONAL OVERDOSE [None]
